FAERS Safety Report 8368279-1 (Version None)
Quarter: 2012Q2

REPORT INFORMATION
  Report Type: 
  Country: None (occurrence: None)
  Receive Date: 20120517
  Receipt Date: 20120511
  Transmission Date: 20120825
  Serious: Yes (Hospitalization)
  Sender: FDA-Public Use
  Company Number: FR-BAYER-2012-047864

PATIENT
  Age: 56 Year
  Sex: Female

DRUGS (23)
  1. DIAMICRON [Concomitant]
     Dosage: 2 DF, QD
  2. PREDNISOLONE [Concomitant]
     Dosage: UNK
     Dates: start: 20111201
  3. NEXIUM [Concomitant]
     Dosage: UNK
     Dates: start: 20111201
  4. LYRICA [Suspect]
     Dosage: 50 MG
     Route: 048
     Dates: start: 20120331, end: 20120403
  5. IMOVANE [Concomitant]
     Dosage: 1 DF, QD
  6. OXYCONTIN [Concomitant]
     Dosage: 120 MG, BID
     Dates: start: 20120131
  7. OXYNORM [Concomitant]
     Dosage: 20 MG, PRN
     Dates: start: 20111228
  8. CIPROFLOXACIN HYDROCHLORIDE [Suspect]
     Dosage: UNK
     Route: 042
     Dates: start: 20120328, end: 20120402
  9. LEXOMIL [Concomitant]
  10. LYRICA [Suspect]
     Dosage: 150 MG, BID
     Route: 048
     Dates: start: 20120321, end: 20120328
  11. TRAMADOL HCL [Suspect]
     Dosage: UNK
     Route: 048
     Dates: start: 20120330, end: 20120402
  12. LYRICA [Suspect]
     Dosage: 150+125MG
     Route: 048
     Dates: start: 20120329, end: 20120329
  13. NARCAN [Concomitant]
  14. EZETIMIBE [Concomitant]
     Dosage: 1 DF, QD
  15. MICARDIS [Concomitant]
     Dosage: 1 DF, QD
  16. CITALOPRAM HYDROBROMIDE [Concomitant]
  17. KEPPRA [Concomitant]
  18. LYRICA [Suspect]
     Indication: SCIATICA
     Dosage: 25 MG, BID
     Route: 048
     Dates: start: 20120313, end: 20120320
  19. LYRICA [Suspect]
     Dosage: 125MG
     Route: 048
     Dates: start: 20120330, end: 20120330
  20. CLONAZEPAM [Concomitant]
     Dosage: UNK
     Dates: end: 20120228
  21. LASIX [Concomitant]
     Indication: LYMPHOEDEMA
  22. PYOSTACINE [Concomitant]
     Indication: INFLAMMATION
     Dosage: UNK
     Dates: start: 20120306
  23. RELPAX [Concomitant]
     Dosage: 1 BOX OF 10 TABLETS EVERY 3 MONHS

REACTIONS (1)
  - POSTERIOR REVERSIBLE ENCEPHALOPATHY SYNDROME [None]
